FAERS Safety Report 4862024-X (Version None)
Quarter: 2005Q4

REPORT INFORMATION
  Report Type: 
  Country: None (occurrence: None)
  Receive Date: 20051129
  Receipt Date: 20050418
  Transmission Date: 20060501
  Serious: Yes (Hospitalization, Other)
  Sender: FDA-Public Use
  Company Number: US_0410106487

PATIENT
  Age: 59 Year
  Sex: Male
  Weight: 89 kg

DRUGS (21)
  1. ZYPREXA [Suspect]
     Dosage: 2.5 MG
     Dates: start: 20021123, end: 20040630
  2. SYMBYAX [Concomitant]
  3. SEROQUEL [Concomitant]
  4. WELLBUTRIN [Concomitant]
  5. PAXIL [Concomitant]
  6. LUPRON [Concomitant]
  7. TOPROL-XL [Concomitant]
  8. NORVASC [Concomitant]
  9. CLARINEX [Concomitant]
  10. CLONIDINE [Concomitant]
  11. RANITIDINE [Concomitant]
  12. PROPOXYPHENE HCL AND ACETAMINOPHEN [Concomitant]
  13. LISINOPRIL W/HYDROCHLOROTHIAZIDE [Concomitant]
  14. LORATADINE [Concomitant]
  15. PROTONIX [Concomitant]
  16. NAPROXEN SODIUM [Concomitant]
  17. PLAVIX [Concomitant]
  18. NITROQUICK (GLYCERYL TRINITRATE) [Concomitant]
  19. CYCLOBENZAPRINE HCL [Concomitant]
  20. TRAMADOL HCL [Concomitant]
  21. DIGESTIVE ENZYMES [Concomitant]

REACTIONS (8)
  - BLOOD CHOLESTEROL ABNORMAL [None]
  - BLOOD TRIGLYCERIDES INCREASED [None]
  - CARDIAC FIBRILLATION [None]
  - CARDIOMEGALY [None]
  - DIABETES MELLITUS NON-INSULIN-DEPENDENT [None]
  - HEPATIC ENZYME INCREASED [None]
  - HYPERTENSION [None]
  - PANCREATITIS [None]
